FAERS Safety Report 7712785-7 (Version None)
Quarter: 2011Q3

REPORT INFORMATION
  Report Type: 
  Country: None (occurrence: None)
  Receive Date: 20110826
  Receipt Date: 20110817
  Transmission Date: 20111222
  Serious: Yes (Death)
  Sender: FDA-Public Use
  Company Number: US-GLAXOSMITHKLINE-A0942322A

PATIENT
  Age: 39 Year
  Sex: Female

DRUGS (6)
  1. CYCLOBENZAPRINE [Concomitant]
  2. OXYCODONE HCL AND ACETAMINOPHEN [Concomitant]
  3. PROMETHAZINE [Concomitant]
  4. TYKERB [Suspect]
     Indication: BREAST CANCER
     Dosage: 1250MG PER DAY
     Route: 048
     Dates: start: 20110407
  5. LEXAPRO [Concomitant]
  6. HYDROCODONE BITARTRATE AND ACETAMINOPHEN [Concomitant]

REACTIONS (1)
  - DEATH [None]
